FAERS Safety Report 7935269-X (Version None)
Quarter: 2011Q4

REPORT INFORMATION
  Report Type: 
  Country: None (occurrence: None)
  Receive Date: 20111122
  Receipt Date: 20111114
  Transmission Date: 20120403
  Serious: Yes (Other)
  Sender: FDA-Public Use
  Company Number: US-BAXTER-2011BH031727

PATIENT
  Sex: Male

DRUGS (3)
  1. DIANEAL [Suspect]
     Route: 033
     Dates: start: 20091201, end: 20100101
  2. DIANEAL [Suspect]
     Indication: PERITONEAL DIALYSIS
     Route: 033
     Dates: start: 20091023, end: 20091030
  3. DIANEAL [Suspect]
     Route: 033
     Dates: start: 20100101

REACTIONS (11)
  - CARDIAC FAILURE [None]
  - DECREASED APPETITE [None]
  - AZOTAEMIA [None]
  - ARTERIOVENOUS FISTULA SITE COMPLICATION [None]
  - ANAEMIA [None]
  - ADHESION [None]
  - DEVICE FAILURE [None]
  - SCAR [None]
  - EMOTIONAL DISTRESS [None]
  - DEPRESSION [None]
  - BLUE TOE SYNDROME [None]
